FAERS Safety Report 10050445 (Version 1)
Quarter: 2014Q2

REPORT INFORMATION
  Report Type: Spontaneous
  Country: FR (occurrence: FR)
  Receive Date: 20140401
  Receipt Date: 20140401
  Transmission Date: 20141212
  Serious: Yes (Hospitalization)
  Sender: FDA-Public Use
  Company Number: FR-ASTRAZENECA-2014SE21428

PATIENT
  Age: 22 Year
  Sex: Male

DRUGS (6)
  1. MOPRAL [Suspect]
     Route: 048
     Dates: start: 20140210, end: 20140217
  2. LAMISIL [Suspect]
     Indication: ONYCHOMYCOSIS
     Dosage: ONCE DAILY
     Dates: start: 20140130, end: 20140217
  3. CARTREX [Suspect]
     Indication: MUSCULOSKELETAL PAIN
     Route: 048
     Dates: start: 20140205, end: 20140217
  4. TOPALGIC [Suspect]
     Indication: MUSCULOSKELETAL PAIN
     Dates: start: 20140205, end: 20140217
  5. KETOPROFENE [Suspect]
     Dosage: 100 MG SR BIDAILY FOR FIVE DAYS
     Dates: start: 20140210, end: 20140217
  6. DIPROSTENE [Suspect]
     Route: 014
     Dates: start: 20140210, end: 20140217

REACTIONS (3)
  - Acute generalised exanthematous pustulosis [Recovered/Resolved]
  - Inflammation [Unknown]
  - Toxic skin eruption [Unknown]
